FAERS Safety Report 5198380-5 (Version None)
Quarter: 2006Q4

REPORT INFORMATION
  Report Type: 
  Country: None (occurrence: None)
  Receive Date: 20061228
  Receipt Date: 20061228
  Transmission Date: 20070319
  Serious: Yes (Other)
  Sender: FDA-Public Use
  Company Number: None

PATIENT
  Age: 49 Year
  Sex: Male
  Weight: 116.1208 kg

DRUGS (3)
  1. EFFEXOR XR [Suspect]
     Indication: FATIGUE
     Dosage: 75 MG ONCE A DAY PO
     Route: 048
     Dates: start: 20060612, end: 20060622
  2. EFFEXOR XR [Suspect]
     Indication: STRESS
     Dosage: 75 MG ONCE A DAY PO
     Route: 048
     Dates: start: 20060612, end: 20060622
  3. EFFEXOR XR [Suspect]
     Dosage: 150 MG ONCE DAILY PO
     Route: 048
     Dates: start: 20060622, end: 20060712

REACTIONS (6)
  - AGGRESSION [None]
  - AGITATION [None]
  - FEELING ABNORMAL [None]
  - IMPAIRED WORK ABILITY [None]
  - IMPRISONMENT [None]
  - IRRITABILITY [None]
